FAERS Safety Report 14078979 (Version 1)
Quarter: 2017Q4

REPORT INFORMATION
  Report Type: Spontaneous
  Country: US (occurrence: US)
  Receive Date: 20171012
  Receipt Date: 20171012
  Transmission Date: 20180321
  Serious: No
  Sender: FDA-Public Use
  Company Number: US-MYLANLABS-2017M1024295

PATIENT
  Age: 7 Year
  Sex: Male

DRUGS (1)
  1. EPIPEN JR [Suspect]
     Active Substance: EPINEPHRINE
     Indication: FOOD ALLERGY
     Dosage: 0.15 MG, ONCE
     Route: 030
     Dates: start: 20160212, end: 20160212

REACTIONS (4)
  - Scar [Not Recovered/Not Resolved]
  - Device failure [Recovered/Resolved]
  - Injection site laceration [Recovered/Resolved]
  - Needle issue [Recovered/Resolved]

NARRATIVE: CASE EVENT DATE: 20160212
